FAERS Safety Report 4779828-4 (Version None)
Quarter: 2005Q3

REPORT INFORMATION
  Report Type: 
  Country: None (occurrence: None)
  Receive Date: 20050927
  Receipt Date: 20050921
  Transmission Date: 20060218
  Serious: Yes (Hospitalization)
  Sender: FDA-Public Use
  Company Number: US-JNJFOC-20050800751

PATIENT
  Sex: Male

DRUGS (1)
  1. RISPERDAL CONSTA [Suspect]
     Indication: PSYCHOTIC DISORDER
     Dosage: ^FOR THE PAST FEW MONTHS^
     Route: 030
     Dates: start: 20050101

REACTIONS (2)
  - DRUG ADMINISTRATION ERROR [None]
  - HOSPITALISATION [None]
